FAERS Safety Report 15783106 (Version 3)
Quarter: 2019Q2

REPORT INFORMATION
  Report Type: Spontaneous
  Country: US (occurrence: US)
  Receive Date: 20190102
  Receipt Date: 20190510
  Transmission Date: 20190711
  Serious: Yes (Hospitalization, Other)
  Sender: FDA-Public Use
  Company Number: US-PFIZER INC-2019000246

PATIENT
  Age: 66 Year
  Sex: Female
  Weight: 75 kg

DRUGS (8)
  1. CHLORDIAZEPOXIDE. [Concomitant]
     Active Substance: CHLORDIAZEPOXIDE
     Indication: DIURETIC THERAPY
     Dosage: 10 MG, 1X/DAY (OR ONCE OF FLARE UP)
     Dates: start: 2004
  2. TRAMADOL. [Concomitant]
     Active Substance: TRAMADOL
     Indication: ARTHRALGIA
     Dosage: UNK UNK, 3X/DAY
     Dates: start: 2016
  3. TOVIAZ [Suspect]
     Active Substance: FESOTERODINE FUMARATE
     Indication: HYPERTONIC BLADDER
     Dosage: 4 MG, 1X/DAY
     Route: 048
     Dates: start: 2011
  4. FLONASE [Concomitant]
     Active Substance: FLUTICASONE PROPIONATE
     Indication: HYPERSENSITIVITY
     Dosage: UNK UNK, AS NEEDED
     Dates: start: 2012
  5. TOVIAZ [Suspect]
     Active Substance: FESOTERODINE FUMARATE
     Dosage: 10 MG, 1X/DAY
     Route: 048
     Dates: start: 2011
  6. TYLENOL [Concomitant]
     Active Substance: ACETAMINOPHEN
     Indication: PAIN
     Dosage: 1 TYLENOL IN AM AND 1 AT BED TIME
     Dates: start: 2016
  7. ROSUVASTATIN. [Concomitant]
     Active Substance: ROSUVASTATIN
     Indication: BLOOD CHOLESTEROL ABNORMAL
     Dosage: 1 DF, DAILY
  8. LEVOTHYROXINE. [Concomitant]
     Active Substance: LEVOTHYROXINE
     Indication: HYPOTHYROIDISM
     Dosage: 25 MG, 1X/DAY(50MG TABLET DR. SAY TAKE 1/2 PILL 25 MG)
     Dates: start: 2004

REACTIONS (11)
  - Arthropathy [Not Recovered/Not Resolved]
  - Ligament rupture [Unknown]
  - Procedural pain [Not Recovered/Not Resolved]
  - Bursitis [Not Recovered/Not Resolved]
  - Weight decreased [Unknown]
  - Product use issue [Unknown]
  - Swelling [Not Recovered/Not Resolved]
  - Arthralgia [Unknown]
  - Inflammation [Not Recovered/Not Resolved]
  - Tendonitis [Not Recovered/Not Resolved]
  - Osteoporosis [Not Recovered/Not Resolved]

NARRATIVE: CASE EVENT DATE: 2011
